FAERS Safety Report 4821370-6 (Version None)
Quarter: 2005Q4

REPORT INFORMATION
  Report Type: 
  Country: None (occurrence: None)
  Receive Date: 20051107
  Receipt Date: 20051028
  Transmission Date: 20060501
  Serious: Yes (Hospitalization)
  Sender: FDA-Public Use
  Company Number: DE-BRISTOL-MYERS SQUIBB COMPANY-13160957

PATIENT
  Age: 61 Year
  Sex: Male

DRUGS (13)
  1. CISPLATIN [Suspect]
     Indication: SMALL CELL LUNG CANCER STAGE UNSPECIFIED
     Route: 042
     Dates: start: 20041221, end: 20041221
  2. ETOPOSIDE [Suspect]
     Indication: SMALL CELL LUNG CANCER STAGE UNSPECIFIED
     Route: 042
     Dates: start: 20041221, end: 20041223
  3. ZOPICLONE [Concomitant]
  4. FORTECORTIN [Concomitant]
  5. NEXIUM [Concomitant]
  6. ENOXAPARIN SODIUM [Concomitant]
  7. KALINOR [Concomitant]
  8. KEVATRIL [Concomitant]
  9. LASIX [Concomitant]
  10. MORPHINE [Concomitant]
  11. ALLOPURINOL [Concomitant]
  12. KALIUMKLORIDE [Concomitant]
  13. RED BLOOD CELLS [Concomitant]

REACTIONS (5)
  - DIARRHOEA [None]
  - PANCYTOPENIA [None]
  - PNEUMONIA [None]
  - PYREXIA [None]
  - TACHYARRHYTHMIA [None]
